FAERS Safety Report 8714076 (Version 2)
Quarter: 2015Q2

REPORT INFORMATION
  Report Type: Report from Study
  Country: US (occurrence: US)
  Receive Date: 20120808
  Receipt Date: 20150625
  Transmission Date: 20150821
  Serious: Yes (Other)
  Sender: FDA-Public Use
  Company Number: US-ROCHE-1098811

PATIENT
  Age: 42 Year
  Sex: Female

DRUGS (12)
  1. NITROGLYCERIN INFUSION [Concomitant]
     Route: 042
  2. LIDOCAINE. [Concomitant]
     Active Substance: LIDOCAINE
     Route: 040
  3. NUBAIN [Concomitant]
     Active Substance: NALBUPHINE HYDROCHLORIDE
     Route: 042
  4. AMINOPHYLLINE [Concomitant]
     Active Substance: AMINOPHYLLINE
     Route: 042
  5. ACTIVASE [Suspect]
     Active Substance: ALTEPLASE
     Dosage: 90MG/90CC
     Route: 042
  6. TYLENOL [Concomitant]
     Active Substance: ACETAMINOPHEN
     Dosage: Q4HR
     Route: 065
  7. HEPARIN [Concomitant]
     Active Substance: HEPARIN SODIUM
     Route: 040
     Dates: start: 19881031
  8. HEPARIN [Concomitant]
     Active Substance: HEPARIN SODIUM
     Route: 040
  9. LOPRESSOR [Concomitant]
     Active Substance: METOPROLOL TARTRATE
     Route: 040
  10. ACTIVASE [Suspect]
     Active Substance: ALTEPLASE
     Indication: ACUTE MYOCARDIAL INFARCTION
     Route: 040
     Dates: start: 19881031
  11. NORMAL SALINE [Concomitant]
     Active Substance: SODIUM CHLORIDE
  12. MORPHINE [Concomitant]
     Active Substance: MORPHINE
     Route: 042

REACTIONS (8)
  - Hypoaesthesia [Unknown]
  - Electrocardiogram ST segment elevation [Unknown]
  - Pain [Unknown]
  - Anxiety [Unknown]
  - Paraesthesia [Unknown]
  - Chest pain [Unknown]
  - Cough [Unknown]
  - Dyspnoea [Unknown]

NARRATIVE: CASE EVENT DATE: 19881031
